FAERS Safety Report 4475780-X (Version None)
Quarter: 2004Q3

REPORT INFORMATION
  Report Type: 
  Country: None (occurrence: None)
  Receive Date: 20040923
  Receipt Date: 20040708
  Transmission Date: 20050211
  Serious: No
  Sender: FDA-Public Use
  Company Number: USA040772090

PATIENT
  Age: 52 Year
  Sex: Female

DRUGS (8)
  1. FORTEO [Suspect]
     Indication: OSTEOPOROSIS
     Dates: start: 20040629
  2. EVISTA [Concomitant]
  3. NEXIUM [Concomitant]
  4. LEXAPRO [Concomitant]
  5. CALTRATE (CALCIUM CARBONATE) [Concomitant]
  6. OMEGA 3 (FISH OIL) [Concomitant]
  7. IBUPROFEN [Concomitant]
  8. IMITREX [Concomitant]

REACTIONS (3)
  - INJECTION SITE ERYTHEMA [None]
  - INJECTION SITE RASH [None]
  - INSOMNIA [None]
